FAERS Safety Report 18066571 (Version 4)
Quarter: 2020Q3

REPORT INFORMATION
  Report Type: Report from Study
  Country: None (occurrence: US)
  Receive Date: 20200724
  Receipt Date: 20200923
  Transmission Date: 20201103
  Serious: Yes (Hospitalization, Other)
  Sender: FDA-Public Use
  Company Number: US-ABBVIE-20K-163-3496453-00

PATIENT
  Age: 54 Year
  Sex: Female
  Weight: 80.81 kg

DRUGS (3)
  1. HUMIRA [Suspect]
     Active Substance: ADALIMUMAB
     Indication: CROHN^S DISEASE
     Route: 058
  2. HUMIRA [Suspect]
     Active Substance: ADALIMUMAB
     Indication: CROHN^S DISEASE
     Route: 058
     Dates: start: 200810
  3. VERAPAMIL [Concomitant]
     Active Substance: VERAPAMIL HYDROCHLORIDE
     Indication: HYPERTENSION

REACTIONS (11)
  - Lichen sclerosus [Not Recovered/Not Resolved]
  - Crohn^s disease [Recovering/Resolving]
  - Amnesia [Recovering/Resolving]
  - Fall [Recovered/Resolved]
  - Stress [Unknown]
  - Craniocerebral injury [Recovering/Resolving]
  - Nerve compression [Not Recovered/Not Resolved]
  - Migraine [Not Recovered/Not Resolved]
  - Back pain [Not Recovered/Not Resolved]
  - Nausea [Unknown]
  - Adverse food reaction [Unknown]

NARRATIVE: CASE EVENT DATE: 200812
